FAERS Safety Report 21571873 (Version 1)
Quarter: 2022Q4

REPORT INFORMATION
  Report Type: Spontaneous
  Country: US (occurrence: US)
  Receive Date: 20221109
  Receipt Date: 20221109
  Transmission Date: 20230112
  Serious: Yes (Other)
  Sender: FDA-Public Use
  Company Number: US-MYLANLABS-2022M1122800

PATIENT
  Age: 75 Year
  Sex: Male

DRUGS (3)
  1. TEMOZOLOMIDE [Suspect]
     Active Substance: TEMOZOLOMIDE
     Indication: Glioblastoma
     Dosage: UNK (AFTER 5 CYCLES)
     Route: 065
  2. ENCORAFENIB [Concomitant]
     Active Substance: ENCORAFENIB
     Indication: Glioblastoma
     Dosage: UNK
     Route: 065
  3. BINIMETINIB [Concomitant]
     Active Substance: BINIMETINIB
     Indication: Glioblastoma
     Dosage: UNK
     Route: 065

REACTIONS (2)
  - Drug ineffective [Unknown]
  - Disease progression [Unknown]
